FAERS Safety Report 12518322 (Version 1)
Quarter: 2016Q2

REPORT INFORMATION
  Report Type: Spontaneous
  Country: US (occurrence: US)
  Receive Date: 20160630
  Receipt Date: 20160630
  Transmission Date: 20160815
  Serious: Yes (Other)
  Sender: FDA-Public Use
  Company Number: US-SAGENTPRD-2016-US-000016

PATIENT
  Age: 51 Year
  Sex: Male
  Weight: 102 kg

DRUGS (14)
  1. NO DRUG NAME [Concomitant]
  2. NO DRUG NAME [Concomitant]
  3. NO DRUG NAME [Concomitant]
  4. HEPARIN SODIUM INJECTION, MDV, 10 ML, 1000 UNIT/ML [Suspect]
     Active Substance: HEPARIN SODIUM
     Route: 042
     Dates: start: 20160222, end: 20160222
  5. NO DRUG NAME [Concomitant]
  6. HEPARIN SODIUM INJECTION, MDV, 10 ML, 1000 UNIT/ML [Concomitant]
     Active Substance: HEPARIN SODIUM
     Route: 042
     Dates: start: 20160222, end: 20160222
  7. NO DRUG NAME [Concomitant]
  8. NO DRUG NAME [Concomitant]
  9. NO DRUG NAME [Concomitant]
  10. NO DRUG NAME [Concomitant]
  11. NO DRUG NAME [Concomitant]
  12. NO DRUG NAME [Concomitant]
  13. NO DRUG NAME [Concomitant]
  14. NO DRUG NAME [Concomitant]

REACTIONS (1)
  - Heparin-induced thrombocytopenia [Unknown]

NARRATIVE: CASE EVENT DATE: 20160222
